FAERS Safety Report 10500478 (Version 3)
Quarter: 2014Q4

REPORT INFORMATION
  Report Type: Report from Study
  Country: US (occurrence: US)
  Receive Date: 20141006
  Receipt Date: 20141124
  Transmission Date: 20150528
  Serious: Yes (Other)
  Sender: FDA-Public Use
  Company Number: US-AMGEN INC.-USASP2014069675

PATIENT
  Age: 72 Year
  Sex: Female
  Weight: 59.41 kg

DRUGS (9)
  1. TYLENOL [Concomitant]
     Active Substance: ACETAMINOPHEN
     Dosage: 500 MG, AS NECESSARY
  2. RED YEAST RICE [Concomitant]
     Active Substance: DIETARY SUPPLEMENT
     Dosage: 1200 MG, BID
  3. ASPIRIN                            /00002701/ [Concomitant]
     Active Substance: ASPIRIN
     Dosage: 81 MG, QD
  4. VITAMIN B12 [Concomitant]
     Active Substance: CYANOCOBALAMIN
     Dosage: 1250 MUG, QD
     Route: 060
  5. VITAMIN D3 [Concomitant]
     Active Substance: CHOLECALCIFEROL
     Dosage: 2000 UNIT, QD
  6. CALTRATE WITH VITAMIN D [Concomitant]
     Active Substance: CALCIUM CARBONATE\VITAMIN D
     Dosage: UNK UNK, BID
     Dates: end: 20140205
  7. ESCITALOPRAM OXALATE. [Concomitant]
     Active Substance: ESCITALOPRAM OXALATE
     Dosage: 10 MG, QD
     Route: 048
  8. PROLIA [Suspect]
     Active Substance: DENOSUMAB
     Indication: OSTEOPOROSIS POSTMENOPAUSAL
     Dosage: 60 MG, Q6MO
     Route: 058
     Dates: start: 20130926
  9. NASONEX [Concomitant]
     Active Substance: MOMETASONE FUROATE
     Dosage: UNK

REACTIONS (26)
  - Bursitis [Unknown]
  - Diverticulitis [Unknown]
  - Trigger finger [Unknown]
  - Hepatic lesion [Unknown]
  - Urinary tract infection [Unknown]
  - Eye pain [Unknown]
  - Sleep disorder [Unknown]
  - Cerumen impaction [Unknown]
  - Pain in extremity [Recovering/Resolving]
  - Rash erythematous [Unknown]
  - Musculoskeletal stiffness [Unknown]
  - Ocular discomfort [Unknown]
  - Blood pressure increased [Unknown]
  - Cough [Unknown]
  - Rash pruritic [Unknown]
  - Cervical radiculopathy [Unknown]
  - Sinusitis [Unknown]
  - Neck pain [Recovering/Resolving]
  - Vulvovaginal dryness [Unknown]
  - Diarrhoea [Recovered/Resolved]
  - Pain [Recovering/Resolving]
  - Lumbar radiculopathy [Unknown]
  - Arthralgia [Unknown]
  - Hypoaesthesia eye [Unknown]
  - Back pain [Recovering/Resolving]
  - Musculoskeletal pain [Recovering/Resolving]

NARRATIVE: CASE EVENT DATE: 20131125
